FAERS Safety Report 22182820 (Version 2)
Quarter: 2023Q2

REPORT INFORMATION
  Report Type: Other
  Country: CA (occurrence: None)
  Receive Date: 20230406
  Receipt Date: 20230406
  Transmission Date: 20230721
  Serious: Yes (Other)
  Sender: FDA-Public Use
  Company Number: CA-Merck Healthcare KGaA-9393608

PATIENT
  Age: 13 Year
  Sex: Male

DRUGS (2)
  1. SOMATROPIN [Suspect]
     Active Substance: SOMATROPIN
     Indication: Short stature
     Dosage: INITIATION DOSE OF 0.18 MG/KG/WEEK DIVIDED INTO SIX DAILY DOSES
  2. SOMATROPIN [Suspect]
     Active Substance: SOMATROPIN
     Dosage: MAXIMUM DOSE RECEIVED WAS 0.28 MG/KG/WEEK DIVIDED INTO SIX DAILY DOSES

REACTIONS (4)
  - Osteochondrosis [Recovering/Resolving]
  - Condition aggravated [Recovering/Resolving]
  - Joint contracture [Recovering/Resolving]
  - Off label use [Unknown]
